FAERS Safety Report 4403612-4 (Version None)
Quarter: 2004Q3

REPORT INFORMATION
  Report Type: 
  Country: None (occurrence: None)
  Receive Date: 20040715
  Receipt Date: 20040629
  Transmission Date: 20050211
  Serious: Yes (Death)
  Sender: FDA-Public Use
  Company Number: US-JNJFOC-20040702544

PATIENT
  Age: 50 Year
  Sex: Female
  Weight: 105.0077 kg

DRUGS (21)
  1. LEVOFLOXACIN [Suspect]
     Indication: SINUSITIS
     Dosage: 500 MG, 1 IN 1 DAY, ORAL
     Route: 048
     Dates: start: 20010921
  2. ASPIRIN [Concomitant]
  3. ATORVASTATIN CALCIUM [Concomitant]
  4. BUSPIRONE [Concomitant]
  5. FENOFIBRATE [Concomitant]
  6. FERROUS SULFATE TAB [Concomitant]
  7. FLUOXETINE [Concomitant]
  8. GLIPIZIDE [Concomitant]
  9. INSULIN [Concomitant]
  10. ISOSORBIDE DINITRATE [Concomitant]
  11. POTASSIUM CHLORIDE [Concomitant]
  12. LEVOTHYROXINE SODIUM [Concomitant]
  13. LISINOPRIL [Concomitant]
  14. LOSARTAN POTASSIUM [Concomitant]
  15. METFORMIN HCL [Concomitant]
  16. METOPROLOL [Concomitant]
  17. NITROPASTE (GLYCERYL TRINITRATE) [Concomitant]
  18. NITROPASTE (GLYCERYL TRINITRATE) [Concomitant]
  19. RANITIDINE [Concomitant]
  20. NITRO SL (GLYCERYL TRINITRATE) [Concomitant]
  21. SPIRINOLACTONE [Concomitant]

REACTIONS (2)
  - ELECTROCARDIOGRAM QT PROLONGED [None]
  - TORSADE DE POINTES [None]
